FAERS Safety Report 8126405-3 (Version None)
Quarter: 2012Q1

REPORT INFORMATION
  Report Type: 
  Country: None (occurrence: None)
  Receive Date: 20120209
  Receipt Date: 20120120
  Transmission Date: 20120608
  Serious: Yes (Other)
  Sender: FDA-Public Use
  Company Number: PHEH2012US002064

PATIENT
  Sex: Male

DRUGS (24)
  1. ACETYLSALICYLIC ACID SRT [Concomitant]
     Dosage: 81 MG DAILY
  2. DIOVAN [Concomitant]
     Dosage: 80 MG QD
  3. MAGNESIUM [Concomitant]
     Dosage: 64 MG BID
  4. COMPAZINE [Concomitant]
     Dosage: 5 MG UNK
  5. LEVEMIR [Concomitant]
     Dosage: 8 - 10 UNITS
  6. SODIUM BICARBONATE [Concomitant]
     Dosage: 650 MG BID
  7. ASCORBIC ACID [Concomitant]
     Dosage: 100 MG QD
  8. AFINITOR [Suspect]
     Indication: PANCREATIC CARCINOMA
     Dosage: 10 MG QD
     Route: 048
  9. MULTIVITAMIN [Concomitant]
  10. ZOLEDRONIC ACID [Suspect]
     Indication: PANCREATIC CARCINOMA
     Dosage: UNK UKN, QMO
     Dates: start: 20090818, end: 20101206
  11. CALCIUM [Concomitant]
     Dosage: 600 MG DAILY
  12. MARINOL [Concomitant]
     Dosage: 2.5 MG BID
  13. STOOL SOFTENER [Concomitant]
  14. ATIVAN [Concomitant]
     Dosage: 5 MG UNK
  15. DEXLANSOPRAZOLE [Concomitant]
     Dosage: 60 MG QD
  16. NOVOLOG [Concomitant]
     Dosage: 8 - 14 UNITS BEFORE AND DURING MEALS
  17. VITAMIN B COMPLEX CAP [Concomitant]
  18. VITAMIN D [Concomitant]
     Dosage: 5000 U BID
  19. SANDOSTATIN LAR [Suspect]
     Indication: PANCREATIC CARCINOMA
     Dosage: UNK UKN, QMO
     Route: 030
     Dates: start: 20090903
  20. FERATAB [Concomitant]
     Dosage: 65 MG UNK
  21. ONDANSETRON HCL [Concomitant]
     Dosage: 4 MG BID
  22. COLACE [Concomitant]
     Dosage: 100 MG DAILY
  23. PROBIOTICS NOS [Concomitant]
  24. RITALIN [Concomitant]
     Dosage: 10 MG TID

REACTIONS (13)
  - INCREASED TENDENCY TO BRUISE [None]
  - MUSCLE SPASMS [None]
  - FATIGUE [None]
  - HYPOCALCAEMIA [None]
  - DERMATITIS ACNEIFORM [None]
  - TETANY [None]
  - HYPOGONADISM [None]
  - INSOMNIA [None]
  - VISUAL ACUITY REDUCED [None]
  - EPISTAXIS [None]
  - NAUSEA [None]
  - RASH [None]
  - VOMITING [None]
